FAERS Safety Report 11696371 (Version 2)
Quarter: 2015Q4

REPORT INFORMATION
  Report Type: Spontaneous
  Country: US (occurrence: US)
  Receive Date: 20151104
  Receipt Date: 20151104
  Transmission Date: 20160304
  Serious: Yes (Hospitalization)
  Sender: FDA-Public Use
  Company Number: US-PFIZER INC-2015350053

PATIENT
  Age: 53 Year
  Sex: Male

DRUGS (1)
  1. VFEND [Suspect]
     Active Substance: VORICONAZOLE
     Indication: HISTOPLASMOSIS DISSEMINATED
     Dosage: 200 MG, 2X/DAY

REACTIONS (2)
  - Renal pain [Unknown]
  - Product use issue [Unknown]

NARRATIVE: CASE EVENT DATE: 2015
